FAERS Safety Report 6373868-X (Version None)
Quarter: 2009Q3

REPORT INFORMATION
  Report Type: 
  Country: None (occurrence: None)
  Receive Date: 20090924
  Receipt Date: 20090617
  Transmission Date: 20100115
  Serious: Yes (Other)
  Sender: FDA-Public Use
  Company Number: US-ASTRAZENECA-2009UW11849

PATIENT
  Age: 569 Month
  Sex: Male

DRUGS (1)
  1. SEROQUEL [Suspect]
     Indication: BIPOLAR DISORDER
     Dosage: 100 MG TO 700 MG
     Route: 048
     Dates: start: 20060101, end: 20080101

REACTIONS (2)
  - DIABETES MELLITUS [None]
  - PANCREATITIS [None]
